FAERS Safety Report 4289599-6 (Version None)
Quarter: 2004Q1

REPORT INFORMATION
  Report Type: 
  Country: None (occurrence: None)
  Receive Date: 20040205
  Receipt Date: 20040123
  Transmission Date: 20041129
  Serious: Yes (Death, Other)
  Sender: FDA-Public Use
  Company Number: 10572972

PATIENT
  Sex: Female

DRUGS (7)
  1. TAXOL [Suspect]
     Indication: BREAST CANCER
     Dosage: 210 MILLIGRAM, 1/1 CYCLE IV
     Route: 042
     Dates: start: 19990621, end: 19990712
  2. FAMOTIDINE [Concomitant]
  3. ZANTAC [Concomitant]
  4. DEXAMETHASONE SODIUM PHOSPHATE [Concomitant]
  5. MARZULENE-S (AZULENE SODIUM SULFONATE) [Concomitant]
  6. HYSRON (MEDROXYPROGESTERONE ACETATE) [Concomitant]
  7. DIPHENHYDRAMINE HCL (DYPHENHYDRAMINE HCL) [Concomitant]

REACTIONS (7)
  - ANAEMIA [None]
  - BLOOD LACTATE DEHYDROGENASE INCREASED [None]
  - INTERSTITIAL LUNG DISEASE [None]
  - LEUKOPENIA [None]
  - NAUSEA [None]
  - PNEUMONITIS [None]
  - STOMACH DISCOMFORT [None]
